FAERS Safety Report 7768309-1 (Version None)
Quarter: 2011Q3

REPORT INFORMATION
  Report Type: 
  Country: None (occurrence: None)
  Receive Date: 20110922
  Receipt Date: 20110302
  Transmission Date: 20111222
  Serious: No
  Sender: FDA-Public Use
  Company Number: US-ASTRAZENECA-2011SE11503

PATIENT
  Age: 41 Year
  Sex: Male

DRUGS (4)
  1. SEROQUEL [Suspect]
     Indication: DRUG WITHDRAWAL SYNDROME
     Route: 048
     Dates: start: 20100326
  2. LEVOTHYROXINE SODIUM [Concomitant]
  3. HYDROCODONE [Concomitant]
  4. TESTOSTERONE INJECTIONS [Concomitant]

REACTIONS (3)
  - NAUSEA [None]
  - OFF LABEL USE [None]
  - FATIGUE [None]
